FAERS Safety Report 10455765 (Version 4)
Quarter: 2015Q2

REPORT INFORMATION
  Report Type: Spontaneous
  Country: US (occurrence: US)
  Receive Date: 20140916
  Receipt Date: 20150611
  Transmission Date: 20150821
  Serious: No
  Sender: FDA-Public Use
  Company Number: US-ASTELLAS-2014US006468

PATIENT
  Age: 79 Year
  Sex: Male

DRUGS (2)
  1. XTANDI [Suspect]
     Active Substance: ENZALUTAMIDE
     Indication: PROSTATE CANCER
     Route: 048
     Dates: start: 20140221
  2. XTANDI [Suspect]
     Active Substance: ENZALUTAMIDE
     Route: 048
     Dates: start: 20140307

REACTIONS (9)
  - Myalgia [Unknown]
  - Limb discomfort [Unknown]
  - Neuropathy peripheral [Unknown]
  - Arthralgia [Recovering/Resolving]
  - Myalgia [Recovering/Resolving]
  - Decreased appetite [Unknown]
  - Underdose [Unknown]
  - Hypoaesthesia [Unknown]
  - Weight decreased [Unknown]

NARRATIVE: CASE EVENT DATE: 20140903
